FAERS Safety Report 9062061 (Version 1)
Quarter: 2013Q1

REPORT INFORMATION
  Report Type: Spontaneous
  Country: US (occurrence: US)
  Receive Date: 20130127
  Receipt Date: 20130127
  Transmission Date: 20140127
  Serious: Yes (Other)
  Sender: FDA-Public Use
  Company Number: US-ALLERGAN-1211582US

PATIENT
  Sex: Female

DRUGS (2)
  1. PRED FORTE [Suspect]
     Indication: EYE INFECTION
     Route: 047
  2. UNSPECIFIED INGREDIENT [Suspect]
     Indication: EYE INFECTION

REACTIONS (3)
  - Glaucoma [Unknown]
  - Intraocular pressure increased [Unknown]
  - Off label use [Unknown]
